FAERS Safety Report 23778625 (Version 6)
Quarter: 2024Q3

REPORT INFORMATION
  Report Type: Spontaneous
  Country: AT (occurrence: AT)
  Receive Date: 20240424
  Receipt Date: 20240913
  Transmission Date: 20241016
  Serious: No
  Sender: PFIZER
  Company Number: AT-PFIZER INC-PV202400045318

PATIENT

DRUGS (1)
  1. GENOTROPIN [Suspect]
     Active Substance: SOMATROPIN
     Dosage: UNK
     Dates: start: 202403

REACTIONS (7)
  - Device issue [Unknown]
  - Needle issue [Unknown]
  - Device leakage [Unknown]
  - Device physical property issue [Unknown]
  - Device information output issue [Unknown]
  - Poor quality device used [Unknown]
  - Incorrect dose administered by device [Unknown]

NARRATIVE: CASE EVENT DATE: 20240301
